FAERS Safety Report 7360483-4 (Version None)
Quarter: 2011Q1

REPORT INFORMATION
  Report Type: 
  Country: None (occurrence: None)
  Receive Date: 20110318
  Receipt Date: 20110310
  Transmission Date: 20110831
  Serious: Yes (Hospitalization)
  Sender: FDA-Public Use
  Company Number: JP-BRISTOL-MYERS SQUIBB COMPANY-15530546

PATIENT
  Age: 42 Year
  Sex: Male

DRUGS (3)
  1. INSULIN [Concomitant]
     Dosage: INJ
  2. ABILIFY [Suspect]
     Dosage: 6MG/DAY
     Route: 048
     Dates: start: 20060901
  3. AMOBAN [Concomitant]
     Dosage: TAB

REACTIONS (2)
  - DIABETIC COMA [None]
  - HYPERGLYCAEMIA [None]
